FAERS Safety Report 19168340 (Version 1)
Quarter: 2021Q2

REPORT INFORMATION
  Report Type: Spontaneous
  Country: US (occurrence: US)
  Receive Date: 20210421
  Receipt Date: 20210421
  Transmission Date: 20210717
  Serious: Yes (Other)
  Sender: FDA-Public Use
  Company Number: None

PATIENT
  Sex: Female

DRUGS (4)
  1. SUMATRIPTAN. [Concomitant]
     Active Substance: SUMATRIPTAN
  2. SUMATRIPTAN. [Suspect]
     Active Substance: SUMATRIPTAN
  3. ELETRIPTAN. [Concomitant]
     Active Substance: ELETRIPTAN
  4. ELETRIPTAN. [Suspect]
     Active Substance: ELETRIPTAN

REACTIONS (1)
  - Therapy non-responder [None]
